FAERS Safety Report 9381300 (Version 1)
Quarter: 2013Q3

REPORT INFORMATION
  Report Type: Spontaneous
  Country: US (occurrence: US)
  Receive Date: 20130703
  Receipt Date: 20130703
  Transmission Date: 20140515
  Serious: No
  Sender: FDA-Public Use
  Company Number: US-BAYER-2013-080661

PATIENT
  Age: 43 Year
  Sex: Female
  Weight: 67.12 kg

DRUGS (2)
  1. BETASERON [Suspect]
     Dosage: 0.25 MG, QOD
     Route: 058
  2. IBUPROFEN [Concomitant]
     Dosage: 200 MG, UNK

REACTIONS (2)
  - Influenza like illness [Unknown]
  - Pain [Unknown]
